FAERS Safety Report 5889871-X (Version None)
Quarter: 2008Q3

REPORT INFORMATION
  Report Type: 
  Country: None (occurrence: None)
  Receive Date: 20080919
  Receipt Date: 20080912
  Transmission Date: 20090109
  Serious: Yes (Hospitalization, Other)
  Sender: FDA-Public Use
  Company Number: DE-ABBOTT-08P-062-0476372-00

PATIENT
  Age: 55 Year
  Sex: Male

DRUGS (3)
  1. NIASPAN [Suspect]
     Indication: DYSLIPIDAEMIA
     Dosage: DOSE INCREASED FROM 500 MG TO 2000 MG
     Route: 048
     Dates: start: 20080310, end: 20080901
  2. AMLODIPINE MALEATE [Concomitant]
     Indication: HYPERTENSION
     Route: 048
     Dates: start: 20070701, end: 20080901
  3. INEGY 10 MG/80 MG TABLETTEN [Concomitant]
     Indication: MIXED HYPERLIPIDAEMIA
     Route: 048
     Dates: start: 20080212

REACTIONS (4)
  - EXERCISE TOLERANCE DECREASED [None]
  - GENERAL PHYSICAL HEALTH DETERIORATION [None]
  - LIVER TENDERNESS [None]
  - TRANSAMINASES INCREASED [None]
